FAERS Safety Report 5521703-1 (Version None)
Quarter: 2007Q4

REPORT INFORMATION
  Report Type: 
  Country: None (occurrence: None)
  Receive Date: 20071120
  Receipt Date: 20071116
  Transmission Date: 20080405
  Serious: Yes (Death, Hospitalization, Other)
  Sender: FDA-Public Use
  Company Number: PHHO2007JP04402

PATIENT
  Age: 74 Year
  Sex: Male

DRUGS (5)
  1. NATEGLINIDE [Suspect]
     Dosage: 180 MG/DAY
     Route: 048
     Dates: start: 20060106, end: 20061229
  2. ACTOS [Concomitant]
     Dosage: 30 MG/DAY
     Route: 048
     Dates: start: 20050720
  3. TAKEPRON [Concomitant]
     Dates: start: 20070227
  4. KINEDAK [Concomitant]
     Dates: start: 20011108
  5. AMARYL [Concomitant]
     Dates: start: 20061230

REACTIONS (5)
  - ABDOMINAL PAIN UPPER [None]
  - GASTRIC CANCER [None]
  - GASTRIC OPERATION [None]
  - GASTRIC ULCER [None]
  - GASTROOESOPHAGEAL REFLUX DISEASE [None]
